FAERS Safety Report 9271969 (Version 4)
Quarter: 2014Q2

REPORT INFORMATION
  Report Type: Spontaneous
  Country: US (occurrence: US)
  Receive Date: 20130506
  Receipt Date: 20140506
  Transmission Date: 20141212
  Serious: No
  Sender: FDA-Public Use
  Company Number: US-009507513-1305USA000895

PATIENT
  Sex: Male

DRUGS (3)
  1. PROPECIA [Suspect]
     Indication: ALOPECIA
     Dosage: 1 MG, QD
     Route: 048
     Dates: start: 2007, end: 200909
  2. PROPECIA [Suspect]
     Dosage: 1 MG, QD
     Route: 048
     Dates: start: 20100410, end: 201205
  3. FINASTERIDE [Suspect]
     Indication: ALOPECIA
     Route: 048

REACTIONS (7)
  - Hair transplant [Unknown]
  - Emotional disorder [Not Recovered/Not Resolved]
  - Tinea versicolour [Unknown]
  - Inappropriate schedule of drug administration [Unknown]
  - Sexual dysfunction [Not Recovered/Not Resolved]
  - Erectile dysfunction [Not Recovered/Not Resolved]
  - Depression [Not Recovered/Not Resolved]
